FAERS Safety Report 15485576 (Version 2)
Quarter: 2018Q4

REPORT INFORMATION
  Report Type: Spontaneous
  Country: BH (occurrence: BH)
  Receive Date: 20181010
  Receipt Date: 20181212
  Transmission Date: 20190205
  Serious: Yes (Other)
  Sender: FDA-Public Use
  Company Number: PHHY2018BH116141

PATIENT
  Age: 15 Year
  Sex: Male

DRUGS (1)
  1. ILARIS [Suspect]
     Active Substance: CANAKINUMAB
     Indication: STILL^S DISEASE
     Dosage: 125 MG/KG, QMO
     Route: 058
     Dates: start: 20180301, end: 20180930

REACTIONS (1)
  - Juvenile idiopathic arthritis [Not Recovered/Not Resolved]
